FAERS Safety Report 9981340 (Version 1)
Quarter: 2014Q1

REPORT INFORMATION
  Report Type: Spontaneous
  Country: GB (occurrence: GB)
  Receive Date: 20140307
  Receipt Date: 20140307
  Transmission Date: 20141002
  Serious: Yes (Other)
  Sender: FDA-Public Use
  Company Number: GB-MYLANLABS-2014S1004398

PATIENT
  Age: 79 Year
  Sex: Male

DRUGS (7)
  1. OMEPRAZOLE [Suspect]
     Indication: DYSPEPSIA
     Dates: start: 20100623, end: 20140114
  2. MOVICOL [Concomitant]
  3. SERTRALINE [Concomitant]
  4. BENDROFLUMETHIAZIDE [Concomitant]
  5. PARACETAMOL [Concomitant]
  6. LOSARTAN [Concomitant]
  7. ASPIRIN [Concomitant]

REACTIONS (1)
  - Nightmare [Recovered/Resolved]
